FAERS Safety Report 7677195-X (Version None)
Quarter: 2011Q3

REPORT INFORMATION
  Report Type: 
  Country: None (occurrence: None)
  Receive Date: 20110811
  Receipt Date: 20110802
  Transmission Date: 20111222
  Serious: Yes (Death, Other)
  Sender: FDA-Public Use
  Company Number: US-AMGEN-US342709

PATIENT
  Sex: Male

DRUGS (3)
  1. NPLATE [Suspect]
     Indication: GRAFT VERSUS HOST DISEASE
     Dosage: UNK UNK, UNK
     Route: 065
     Dates: start: 20090409, end: 20090701
  2. CORTICOSTEROID NOS [Concomitant]
     Dosage: UNK UNK, UNK
     Route: 065
  3. IMMUNOGLOBULINS [Concomitant]
     Dosage: UNK UNK, UNK
     Route: 042

REACTIONS (2)
  - DEATH [None]
  - SCLERODERMA [None]
